FAERS Safety Report 4502490-2 (Version None)
Quarter: 2004Q3

REPORT INFORMATION
  Report Type: 
  Country: None (occurrence: None)
  Receive Date: 20040928
  Receipt Date: 20040629
  Transmission Date: 20050211
  Serious: No
  Sender: FDA-Public Use
  Company Number: 04P-163-0265002-00

PATIENT
  Age: 62 Year
  Sex: Male

DRUGS (6)
  1. HUMIRA [Suspect]
     Indication: RHEUMATOID ARTHRITIS
     Dosage: 40 MG, 1 IN 2 WK, SUBCUTANEOUS
     Route: 058
     Dates: start: 20030301, end: 20040521
  2. FOLIC ACID [Concomitant]
  3. ERGOCALCIFEROL [Concomitant]
  4. ZOCOR [Concomitant]
  5. LORAZEPAM [Concomitant]
  6. PREDNISONE [Concomitant]

REACTIONS (1)
  - RASH [None]
